FAERS Safety Report 4907031-3 (Version None)
Quarter: 2006Q1

REPORT INFORMATION
  Report Type: 
  Country: None (occurrence: None)
  Receive Date: 20060206
  Receipt Date: 20060125
  Transmission Date: 20060701
  Serious: Yes (Other)
  Sender: FDA-Public Use
  Company Number: 2006BH001303

PATIENT
  Age: 48 Year
  Sex: Male

DRUGS (2)
  1. NAFCILLIN INJECTION IN PLASTIC CONTAINER [Suspect]
     Indication: STAPHYLOCOCCAL INFECTION
     Dosage: 12 GM; DAY; IV
     Route: 042
  2. VANCOMYCIN [Suspect]

REACTIONS (1)
  - SYSTEMIC LUPUS ERYTHEMATOSUS [None]
